FAERS Safety Report 10162052 (Version 2)
Quarter: 2014Q2

REPORT INFORMATION
  Report Type: Spontaneous
  Country: US (occurrence: None)
  Receive Date: 20140507
  Receipt Date: 20140521
  Transmission Date: 20141212
  Serious: Yes (Other)
  Sender: FDA-Public Use
  Company Number: JPI-P-026461

PATIENT
  Age: 28 Year
  Sex: Female

DRUGS (1)
  1. XYREM [Suspect]
     Indication: NARCOLEPSY
     Route: 048
     Dates: start: 20110830, end: 2011

REACTIONS (7)
  - Abortion spontaneous [None]
  - Thirst [None]
  - Feeling of body temperature change [None]
  - Pain in extremity [None]
  - Vomiting [None]
  - Tremor [None]
  - Maternal drugs affecting foetus [None]
